FAERS Safety Report 4964300-9 (Version None)
Quarter: 2006Q2

REPORT INFORMATION
  Report Type: 
  Country: None (occurrence: None)
  Receive Date: 20060406
  Receipt Date: 20060210
  Transmission Date: 20061013
  Serious: Yes (Other)
  Sender: FDA-Public Use
  Company Number: US-ABBOTT-06P-163-0324573-00

PATIENT
  Age: 37 Year
  Sex: Female
  Weight: 72.64 kg

DRUGS (16)
  1. TARKA [Suspect]
     Indication: DRUG USE FOR UNKNOWN INDICATION
     Dosage: 2 MG/240 MG
     Dates: start: 20060116, end: 20060127
  2. EQUETRO [Suspect]
     Indication: BIPOLAR DISORDER
     Route: 048
     Dates: start: 20051101, end: 20060130
  3. EQUETRO [Suspect]
     Dosage: 200 MG 3 DOSES
     Dates: start: 20060217, end: 20060218
  4. NITROFURANTOIN [Suspect]
     Indication: DYSURIA
     Dates: start: 20060116, end: 20060127
  5. AMLODIPINE BESYLATE [Concomitant]
     Indication: DRUG USE FOR UNKNOWN INDICATION
  6. OMEPRAZOLE [Concomitant]
     Indication: DRUG USE FOR UNKNOWN INDICATION
  7. ZOLPIDEM TARTRATE [Concomitant]
     Indication: DRUG USE FOR UNKNOWN INDICATION
  8. CYMBALTA [Concomitant]
     Indication: DRUG USE FOR UNKNOWN INDICATION
  9. LORAZEPAM [Concomitant]
     Indication: DRUG USE FOR UNKNOWN INDICATION
  10. LOTREL [Concomitant]
     Indication: DRUG USE FOR UNKNOWN INDICATION
     Dates: end: 20060114
  11. EXCEDRIN [Concomitant]
     Indication: HEADACHE
     Dates: end: 20060124
  12. METOPROLOL SUCCINATE [Concomitant]
     Indication: DRUG USE FOR UNKNOWN INDICATION
     Dates: start: 20060114
  13. DIPHENHYDRAMINE HYDROCHLORIDE [Concomitant]
     Indication: DRUG WITHDRAWAL SYNDROME
     Dates: start: 20051001
  14. LANSOPRAZOLE [Concomitant]
     Indication: DRUG USE FOR UNKNOWN INDICATION
  15. TOPIRAMATE [Concomitant]
     Indication: DEPRESSION
     Dates: start: 20060218
  16. EQUETRO REGIMEN [Concomitant]
     Indication: DRUG USE FOR UNKNOWN INDICATION
     Dates: start: 20060217, end: 20060218

REACTIONS (18)
  - ABDOMINAL PAIN [None]
  - ANXIETY [None]
  - BACK PAIN [None]
  - BIPOLAR DISORDER [None]
  - BLOOD PRESSURE INCREASED [None]
  - CHEST PAIN [None]
  - DECREASED APPETITE [None]
  - DEPRESSION [None]
  - DYSPNOEA [None]
  - DYSURIA [None]
  - GROIN PAIN [None]
  - HEADACHE [None]
  - HEPATITIS [None]
  - HEPATITIS C [None]
  - INSOMNIA [None]
  - PAIN IN EXTREMITY [None]
  - PAIN IN JAW [None]
  - PRURITUS GENERALISED [None]
